FAERS Safety Report 12621442 (Version 1)
Quarter: 2016Q3

REPORT INFORMATION
  Report Type: Spontaneous
  Country: US (occurrence: None)
  Receive Date: 20160803
  Receipt Date: 20160803
  Transmission Date: 20161109
  Serious: Yes (Hospitalization)
  Sender: FDA-Public Use
  Company Number: None

PATIENT
  Age: 54 Year
  Sex: Male
  Weight: 81.5 kg

DRUGS (2)
  1. BUPROPION. [Suspect]
     Active Substance: BUPROPION
     Indication: DEPRESSION
     Route: 048
     Dates: start: 20071018, end: 20150602
  2. TRAMADOL. [Suspect]
     Active Substance: TRAMADOL
     Indication: PAIN
     Route: 048
     Dates: start: 20130121, end: 20150602

REACTIONS (1)
  - Seizure [None]

NARRATIVE: CASE EVENT DATE: 20150602
